FAERS Safety Report 13186223 (Version 3)
Quarter: 2017Q2

REPORT INFORMATION
  Report Type: Spontaneous
  Country: US (occurrence: US)
  Receive Date: 20170204
  Receipt Date: 20170517
  Transmission Date: 20170830
  Serious: No
  Sender: FDA-Public Use
  Company Number: US-TEVA-728697ACC

PATIENT
  Age: 27 Year
  Sex: Female
  Weight: 52.66 kg

DRUGS (3)
  1. PARAGARD T 380A [Suspect]
     Active Substance: COPPER
     Dates: start: 20170303
  2. PARAGARD T 380A [Suspect]
     Active Substance: COPPER
     Indication: CONTRACEPTION
     Dates: start: 20161205, end: 20170105
  3. IMIQUIMOD. [Concomitant]
     Active Substance: IMIQUIMOD

REACTIONS (3)
  - Device expulsion [Recovered/Resolved]
  - Dysmenorrhoea [Unknown]
  - Muscle spasms [Unknown]

NARRATIVE: CASE EVENT DATE: 20161205
